FAERS Safety Report 6028218-5 (Version None)
Quarter: 2008Q4

REPORT INFORMATION
  Report Type: 
  Country: None (occurrence: None)
  Receive Date: 20081231
  Receipt Date: 20081231
  Transmission Date: 20090506
  Serious: Yes (Life-Threatening)
  Sender: FDA-Public Use
  Company Number: None

PATIENT
  Age: 75 Year
  Sex: Male

DRUGS (4)
  1. FENTANYL [Suspect]
     Indication: POSTOPERATIVE CARE
     Dosage: 25-50 MCG PER HOUR IV
     Route: 042
     Dates: start: 20081008, end: 20081008
  2. FENTANYL [Suspect]
     Indication: SEDATIVE THERAPY
     Dosage: 25-50 MCG PER HOUR IV
     Route: 042
     Dates: start: 20081008, end: 20081008
  3. PROPOFOL [Suspect]
     Indication: POSTOPERATIVE CARE
     Dosage: 0-30 MCG/KG/MIN IV
     Route: 042
     Dates: start: 20081008, end: 20081008
  4. PROPOFOL [Suspect]
     Indication: SEDATIVE THERAPY
     Dosage: 0-30 MCG/KG/MIN IV
     Route: 042
     Dates: start: 20081008, end: 20081008

REACTIONS (3)
  - CARDIAC ARREST [None]
  - ELECTROMECHANICAL DISSOCIATION [None]
  - HYPOTENSION [None]
